FAERS Safety Report 7308881-9 (Version None)
Quarter: 2011Q1

REPORT INFORMATION
  Report Type: 
  Country: None (occurrence: None)
  Receive Date: 20110223
  Receipt Date: 20100723
  Transmission Date: 20110831
  Serious: No
  Sender: FDA-Public Use
  Company Number: US-NOVOPROD-311886

PATIENT
  Sex: Male

DRUGS (1)
  1. NOVOSEVEN RT [Suspect]
     Indication: PROPHYLAXIS
     Dosage: 2 MG, BID
     Route: 042
     Dates: start: 20100709, end: 20100709

REACTIONS (2)
  - BLEEDING TIME PROLONGED [None]
  - DRUG INEFFECTIVE [None]
